FAERS Safety Report 7569271-7 (Version None)
Quarter: 2011Q2

REPORT INFORMATION
  Report Type: 
  Country: None (occurrence: None)
  Receive Date: 20110623
  Receipt Date: 20110621
  Transmission Date: 20111010
  Serious: Yes (Death, Hospitalization)
  Sender: FDA-Public Use
  Company Number: PHFR2011GB03354

PATIENT
  Sex: Male

DRUGS (3)
  1. DIAZEPAM [Concomitant]
     Indication: ANXIETY
     Dosage: 4 MG/DAY
     Route: 048
  2. CLOZAPINE [Suspect]
     Indication: SCHIZOPHRENIA
     Dosage: 800 MG/DAY
     Route: 048
     Dates: start: 20050415
  3. LACTULOSE [Concomitant]
     Indication: CONSTIPATION
     Dosage: 40 ML/DAY
     Route: 048

REACTIONS (6)
  - CARDIAC ARREST [None]
  - MALAISE [None]
  - INTESTINAL DILATATION [None]
  - VOMITING [None]
  - PANCREATITIS [None]
  - SYNCOPE [None]
